FAERS Safety Report 8184804-8 (Version None)
Quarter: 2012Q1

REPORT INFORMATION
  Report Type: 
  Country: None (occurrence: None)
  Receive Date: 20120212
  Receipt Date: 20110816
  Transmission Date: 20120608
  Serious: Yes (Death, Hospitalization)
  Sender: FDA-Public Use
  Company Number: DAV-AE-MTX-11-047

PATIENT
  Age: 65 Year
  Sex: Female

DRUGS (6)
  1. OLMEZARTAN [Concomitant]
  2. ASPIRIN [Concomitant]
  3. ZOLPIDEM [Concomitant]
  4. MIRTAZAPINE [Concomitant]
  5. METHOTREXATE [Suspect]
     Indication: RHEUMATOID ARTHRITIS
     Dosage: ORAL
     Route: 048
     Dates: start: 20110414
  6. SIMVASTATIN [Concomitant]

REACTIONS (1)
  - DEEP VEIN THROMBOSIS [None]
